FAERS Safety Report 7761900-8 (Version None)
Quarter: 2011Q3

REPORT INFORMATION
  Report Type: 
  Country: None (occurrence: None)
  Receive Date: 20110919
  Receipt Date: 20110919
  Transmission Date: 20111222
  Serious: No
  Sender: FDA-Public Use
  Company Number: None

PATIENT
  Age: 62 Year
  Sex: Female

DRUGS (15)
  1. DURAGESIC-100 [Concomitant]
  2. LEVOTHROID [Concomitant]
  3. PROZAC [Concomitant]
  4. DECADRON [Concomitant]
  5. VICODIN [Concomitant]
  6. HYDROCHLOROTHIAZIDE [Concomitant]
  7. ASPIRIN [Concomitant]
  8. PAMELOR [Concomitant]
  9. ZOCOR [Concomitant]
  10. REVLIMID [Suspect]
     Indication: MULTIPLE MYELOMA
     Dosage: 15MG QDX7D/14D ORALLY
     Route: 048
     Dates: start: 20080501, end: 20110901
  11. PRILOSEC [Concomitant]
  12. ZOFRAN [Concomitant]
  13. FLEXERIL [Concomitant]
  14. TENORMIN [Concomitant]
  15. ZESTRIL [Concomitant]

REACTIONS (3)
  - PLATELET COUNT DECREASED [None]
  - HAEMOGLOBIN DECREASED [None]
  - NEUTROPHIL COUNT DECREASED [None]
